FAERS Safety Report 4724526-6 (Version None)
Quarter: 2005Q3

REPORT INFORMATION
  Report Type: 
  Country: None (occurrence: None)
  Receive Date: 20050721
  Receipt Date: 20050627
  Transmission Date: 20060218
  Serious: Yes (Death)
  Sender: FDA-Public Use
  Company Number: T05-FIN-02354-01

PATIENT
  Age: 44 Year
  Sex: Male

DRUGS (3)
  1. CIPRALEX (ESCITALOPRAM) [Suspect]
     Indication: ALCOHOLISM
     Dosage: 20 MG QD
     Dates: start: 20050309, end: 20050101
  2. CIPRALEX (ESCITALOPRAM) [Suspect]
     Indication: DEPRESSION
     Dosage: 20 MG QD
     Dates: start: 20050309, end: 20050101
  3. VIAGRA (SIDENAFIL CITRATE) [Concomitant]

REACTIONS (1)
  - SUDDEN DEATH [None]
